FAERS Safety Report 9935325 (Version 2)
Quarter: 2014Q2

REPORT INFORMATION
  Report Type: Spontaneous
  Country: FR (occurrence: FR)
  Receive Date: 20140228
  Receipt Date: 20140409
  Transmission Date: 20141212
  Serious: Yes (Other)
  Sender: FDA-Public Use
  Company Number: FR-PFIZER INC-2014056293

PATIENT
  Age: 69 Year
  Sex: Female

DRUGS (17)
  1. XANAX [Suspect]
     Dosage: 0.5 MG, 1X/DAY
     Route: 048
     Dates: start: 20131104, end: 20131118
  2. DEBRIDAT [Suspect]
     Dosage: 288 MG, 1X/DAY
     Route: 048
     Dates: start: 20131102, end: 20131118
  3. EUPANTOL [Suspect]
     Dosage: 20 MG, 1X/DAY
     Route: 048
     Dates: start: 20131106, end: 20131118
  4. CITALOPRAM HBR [Suspect]
     Dosage: 20 MG, 1X/DAY
     Route: 048
     Dates: start: 20131026, end: 20131121
  5. AUGMENTIN [Suspect]
     Dosage: 1 G/ 125 MG, QD
     Route: 048
     Dates: start: 20131014, end: 20131024
  6. PRIMPERAN [Suspect]
     Dosage: 10 MG, DAILY
     Route: 048
     Dates: start: 20131104, end: 20131118
  7. EUPRESSYL [Concomitant]
     Dosage: 60 MG, 2X/DAY
  8. BISOCE [Concomitant]
     Dosage: 1.25 MG, DAILY
  9. GLICLAZIDE [Concomitant]
     Dosage: 30 MG, DAILY
  10. FRAGMIN [Concomitant]
     Dosage: 5000 IU, DAILY
  11. DAFALGAN [Concomitant]
     Dosage: UNK, AS NEEDED
  12. SERESTA [Concomitant]
     Dosage: UNK
     Dates: end: 20131104
  13. INEXIUM /01479302/ [Concomitant]
     Dosage: UNK
     Dates: end: 20131106
  14. OFLOXACINE [Concomitant]
     Dosage: UNK
  15. N-ACETYLCYSTEINE [Concomitant]
     Dosage: UNK
  16. DELURSAN [Concomitant]
     Dosage: UNK
  17. ATARAX [Concomitant]
     Dosage: UNK

REACTIONS (1)
  - Hepatitis cholestatic [Recovered/Resolved]
